FAERS Safety Report 21461633 (Version 1)
Quarter: 2022Q4

REPORT INFORMATION
  Report Type: Spontaneous
  Country: IR (occurrence: None)
  Receive Date: 20221015
  Receipt Date: 20221015
  Transmission Date: 20230113
  Serious: Yes (Other)
  Sender: FDA-Public Use
  Company Number: IR-Accord-238582

PATIENT
  Age: 54 Year
  Sex: Male

DRUGS (3)
  1. CARBIDOPA\LEVODOPA [Suspect]
     Active Substance: CARBIDOPA\LEVODOPA
     Indication: Parkinson^s disease
     Dosage: 100/25 MG, REDUCED TO 100MG/DAY
  2. PROPRANOLOL [Concomitant]
     Active Substance: PROPRANOLOL HYDROCHLORIDE
     Indication: Parkinson^s disease
  3. DIAZEPAM [Concomitant]
     Active Substance: DIAZEPAM
     Indication: Parkinson^s disease

REACTIONS (2)
  - Parkinsonian gait [Recovered/Resolved]
  - Dystonia [Recovering/Resolving]
